FAERS Safety Report 13745163 (Version 2)
Quarter: 2017Q3

REPORT INFORMATION
  Report Type: Spontaneous
  Country: GB (occurrence: GB)
  Receive Date: 20170712
  Receipt Date: 20170726
  Transmission Date: 20171127
  Serious: Yes (Death)
  Sender: FDA-Public Use
  Company Number: GB-ACCORD-052976

PATIENT
  Age: 62 Year
  Sex: Male

DRUGS (1)
  1. CAPECITABINE ACCORD [Suspect]
     Active Substance: CAPECITABINE
     Indication: RECTAL CANCER
     Dosage: PRESCRIBED 3 X 500 MG CAPECITABINE ACCORD FOR 35 DAYS CONTINUOUSLY

REACTIONS (13)
  - Dysuria [Fatal]
  - Proctalgia [Fatal]
  - Enterocolitis [Fatal]
  - Eye pain [Fatal]
  - Abdominal pain upper [Fatal]
  - Diarrhoea [Fatal]
  - Pneumonia [Fatal]
  - Abdominal compartment syndrome [Fatal]
  - Disease progression [Fatal]
  - Palmar-plantar erythrodysaesthesia syndrome [Fatal]
  - Penile ulceration [Fatal]
  - Oral pain [Fatal]
  - Lip pain [Fatal]
